FAERS Safety Report 8339491-2 (Version None)
Quarter: 2012Q2

REPORT INFORMATION
  Report Type: 
  Country: None (occurrence: None)
  Receive Date: 20120507
  Receipt Date: 20120427
  Transmission Date: 20120825
  Serious: Yes (Hospitalization)
  Sender: FDA-Public Use
  Company Number: PHHY2012DE037737

PATIENT

DRUGS (10)
  1. ACETYLSALICYLIC ACID SRT [Concomitant]
  2. RAMIPRIL [Concomitant]
  3. TASIGNA [Suspect]
  4. SIMVASTATIN [Concomitant]
  5. PLAVIX [Concomitant]
  6. TORSEMIDE [Concomitant]
  7. PANTOPRAZOLE [Concomitant]
  8. BISOPROLOL FUMARATE [Concomitant]
  9. DOXACOR [Concomitant]
  10. ENOXAPARIN SODIUM [Concomitant]

REACTIONS (4)
  - CEREBRAL INFARCTION [None]
  - ANGINA PECTORIS [None]
  - MYOCARDIAL INFARCTION [None]
  - TACHYARRHYTHMIA [None]
